FAERS Safety Report 21709327 (Version 1)
Quarter: 2022Q4

REPORT INFORMATION
  Report Type: Spontaneous
  Country: US (occurrence: US)
  Receive Date: 20221210
  Receipt Date: 20221210
  Transmission Date: 20230113
  Serious: Yes (Life-Threatening, Hospitalization, Other)
  Sender: FDA-Public Use
  Company Number: US-MLMSERVICE-20221122-3928409-1

PATIENT
  Age: 32 Year
  Sex: Female

DRUGS (12)
  1. QUETIAPINE [Suspect]
     Active Substance: QUETIAPINE
     Indication: Insomnia
     Dosage: STARTED ON HD 2 AT 21:17 HRS?STOPPED ON HD 4 AT 08:06 HRS
  2. ONDANSETRON [Suspect]
     Active Substance: ONDANSETRON
     Indication: Nausea
     Dosage: STARTED ON HD 1 AT 12:41 HRS?STOPPED ON HD 2 AT 10:25 HRS
  3. REMDESIVIR [Suspect]
     Active Substance: REMDESIVIR
     Indication: COVID-19
     Dosage: STARTED ON HD 1 AT 23:39 HRS?STOPPED ON HD 4 AT 11:25 HRS
  4. PROCHLORPERAZINE [Suspect]
     Active Substance: PROCHLORPERAZINE
     Indication: Nausea
     Dosage: GIVEN ON HD 5 AT 06:15 HRS
  5. CITALOPRAM [Suspect]
     Active Substance: CITALOPRAM HYDROBROMIDE
     Indication: Anxiety disorder
     Dosage: STARTED ON HD 2 AT 09:32 HRS?STOPPED ON HD 5 AT 18:56 HRS
  6. APIXABAN [Concomitant]
     Active Substance: APIXABAN
     Indication: Pulmonary embolism
     Dosage: STARTED ON HD 2 AT 09:33 HRS
  7. DEXAMETHASONE [Concomitant]
     Active Substance: DEXAMETHASONE
     Indication: COVID-19
     Dosage: STARTED ON HD 1 AT 23:19 HRS
  8. HYDROMORPHONE [Concomitant]
     Active Substance: HYDROMORPHONE
     Dosage: STARTED ON HD 1 AT 19:03 HRS
  9. LORAZEPAM [Concomitant]
     Active Substance: LORAZEPAM
     Dosage: STARTED ON HD 1 AT 20:01 HRS
  10. APIXABAN [Concomitant]
     Active Substance: APIXABAN
     Indication: Deep vein thrombosis
     Dosage: STARTED ON HD 2 AT 09:33 HRS
  11. PROCHLORPERAZINE [Suspect]
     Active Substance: PROCHLORPERAZINE
     Indication: Nausea
     Dosage: GIVEN ON HD 4 AT 20:04 HRS
  12. CITALOPRAM [Suspect]
     Active Substance: CITALOPRAM HYDROBROMIDE
     Indication: Depression
     Dosage: STARTED ON HD 2 AT 09:32 HRS?STOPPED ON HD 5 AT 18:56 HRS

REACTIONS (2)
  - Electrocardiogram QT prolonged [Recovered/Resolved]
  - Torsade de pointes [Recovered/Resolved]
